FAERS Safety Report 7549976-4 (Version None)
Quarter: 2011Q2

REPORT INFORMATION
  Report Type: 
  Country: None (occurrence: None)
  Receive Date: 20110615
  Receipt Date: 20110613
  Transmission Date: 20111010
  Serious: No
  Sender: FDA-Public Use
  Company Number: US-PFIZER INC-2011113905

PATIENT

DRUGS (1)
  1. LYRICA [Suspect]
     Dosage: 50 MG, 1X/DAY

REACTIONS (1)
  - MUSCLE TWITCHING [None]
